FAERS Safety Report 14957310 (Version 1)
Quarter: 2018Q2

REPORT INFORMATION
  Report Type: Report from Study
  Country: ZA (occurrence: ZA)
  Receive Date: 20180531
  Receipt Date: 20180531
  Transmission Date: 20180711
  Serious: Yes (Death, Hospitalization, Other)
  Sender: FDA-Public Use
  Company Number: ZA-AMGEN-ZAFSL2018073020

PATIENT
  Age: 78 Year
  Sex: Male

DRUGS (2)
  1. ARANESP [Suspect]
     Active Substance: DARBEPOETIN ALFA
     Indication: CHRONIC KIDNEY DISEASE
  2. ARANESP [Suspect]
     Active Substance: DARBEPOETIN ALFA
     Indication: ANAEMIA
     Dosage: 60 MUG, QWK
     Route: 058
     Dates: start: 201301, end: 201805

REACTIONS (2)
  - Death [Fatal]
  - Hospitalisation [Recovered/Resolved]

NARRATIVE: CASE EVENT DATE: 20180402
